FAERS Safety Report 5965943-6 (Version None)
Quarter: 2008Q4

REPORT INFORMATION
  Report Type: 
  Country: None (occurrence: None)
  Receive Date: 20081125
  Receipt Date: 20081113
  Transmission Date: 20090506
  Serious: Yes (Hospitalization)
  Sender: FDA-Public Use
  Company Number: ES-ELI_LILLY_AND_COMPANY-ES200811003573

PATIENT
  Age: 73 Year
  Sex: Female
  Weight: 40 kg

DRUGS (5)
  1. FORTEO [Suspect]
     Dosage: 20 UG, UNKNOWN
     Route: 058
     Dates: start: 20080401, end: 20081022
  2. HEPARIN [Concomitant]
     Dosage: UNK, UNKNOWN
     Route: 065
  3. CALCIUM [Concomitant]
     Dosage: UNK, UNKNOWN
     Route: 065
  4. NOLOTIL [Concomitant]
     Dosage: UNK, UNKNOWN
     Route: 065
  5. ANALGESICS [Concomitant]
     Dosage: UNK, UNKNOWN
     Route: 065

REACTIONS (3)
  - MOBILITY DECREASED [None]
  - OEDEMA PERIPHERAL [None]
  - PROTEIN TOTAL DECREASED [None]
